FAERS Safety Report 24407936 (Version 1)
Quarter: 2024Q4

REPORT INFORMATION
  Report Type: Spontaneous
  Country: US (occurrence: None)
  Receive Date: 20241007
  Receipt Date: 20241007
  Transmission Date: 20250114
  Serious: No
  Sender: Public
  Company Number: None

PATIENT
  Age: 5 Year
  Sex: Male
  Weight: 35.2 kg

DRUGS (2)
  1. PROMACTA [Suspect]
     Active Substance: ELTROMBOPAG OLAMINE
     Indication: Immune thrombocytopenia
     Dosage: FREQUENCY : DAILY;?
     Route: 048
     Dates: start: 20230425
  2. MULTIVITAMIN CHILDRENS GUMMIES 60S [Concomitant]

REACTIONS (1)
  - Pyrexia [None]

NARRATIVE: CASE EVENT DATE: 20241006
